FAERS Safety Report 5919100-X (Version None)
Quarter: 2008Q3

REPORT INFORMATION
  Report Type: 
  Country: None (occurrence: None)
  Receive Date: 20080909
  Receipt Date: 20061226
  Transmission Date: 20090109
  Serious: Yes (Hospitalization)
  Sender: FDA-Public Use
  Company Number: 163-20785-06121183

PATIENT
  Age: 66 Year
  Sex: Male

DRUGS (10)
  1. THALOMID [Suspect]
     Indication: MULTIPLE MYELOMA
     Dosage: 100 MG, QHS, ORAL
     Route: 048
     Dates: start: 20061107, end: 20061128
  2. BORTEZOMIB (BORTEZOMIB) [Suspect]
     Indication: MULTIPLE MYELOMA
     Dosage: 2 MG ON DAYS 1, 4, 8, 11 EVERY 28 DAYS, INTRAVENOUS
     Route: 042
     Dates: start: 20061107, end: 20061117
  3. DEXAMETHASONE TAB [Suspect]
     Indication: MULTIPLE MYELOMA
     Dosage: SEE IMAGE
     Route: 048
     Dates: start: 20061107, end: 20061110
  4. DEXAMETHASONE TAB [Suspect]
     Indication: MULTIPLE MYELOMA
     Dosage: SEE IMAGE
     Route: 048
     Dates: start: 20061114, end: 20061117
  5. LOVENOX [Concomitant]
  6. FOLIC ACID [Concomitant]
  7. LEVAQUIN [Concomitant]
  8. ACYCLOVIR [Concomitant]
  9. VFEND [Concomitant]
  10. MULTIVITAMIN [Concomitant]

REACTIONS (5)
  - DYSPNOEA [None]
  - HYPERHIDROSIS [None]
  - HYPERTROPHIC CARDIOMYOPATHY [None]
  - HYPOTENSION [None]
  - SYNCOPE [None]
